FAERS Safety Report 4469795-5 (Version None)
Quarter: 2004Q4

REPORT INFORMATION
  Report Type: 
  Country: None (occurrence: None)
  Receive Date: 20041008
  Receipt Date: 20010905
  Transmission Date: 20050328
  Serious: Yes (Other)
  Sender: FDA-Public Use
  Company Number: US-GLAXOSMITHKLINE-A0352816A

PATIENT
  Age: 39 Year
  Sex: Female
  Weight: 68.03 kg

DRUGS (3)
  1. PAXIL [Suspect]
     Indication: FIBROMYALGIA
     Dosage: 10MG PER DAY
     Route: 048
     Dates: start: 20000801
  2. PAXIL [Suspect]
     Dosage: 20MG PER DAY
     Route: 048
     Dates: end: 20010821
  3. PAXIL [Suspect]
     Dosage: 10MG PER DAY
     Route: 048
     Dates: start: 20010821

REACTIONS (18)
  - ANGER [None]
  - BALANCE DISORDER [None]
  - CONFUSIONAL STATE [None]
  - DEPENDENCE [None]
  - DEPRESSION [None]
  - DISSOCIATION [None]
  - DRUG WITHDRAWAL SYNDROME [None]
  - FEELING ABNORMAL [None]
  - FEELING HOT AND COLD [None]
  - HYPOAESTHESIA [None]
  - IRRITABILITY [None]
  - MENTAL IMPAIRMENT [None]
  - NAUSEA [None]
  - SUICIDAL IDEATION [None]
  - THINKING ABNORMAL [None]
  - TINNITUS [None]
  - TREMOR [None]
  - WEIGHT INCREASED [None]
